FAERS Safety Report 15384517 (Version 2)
Quarter: 2021Q2

REPORT INFORMATION
  Report Type: Report from Study
  Country: US (occurrence: US)
  Receive Date: 20180914
  Receipt Date: 20210505
  Transmission Date: 20210716
  Serious: No
  Sender: FDA-Public Use
  Company Number: US-SHIRE-US201833975

PATIENT
  Age: 69 Year
  Sex: Female

DRUGS (9)
  1. TEDUGLUTIDE [Suspect]
     Active Substance: TEDUGLUTIDE
     Dosage: 0.2500 PER DAY
     Route: 058
     Dates: start: 20170808
  2. TEDUGLUTIDE [Suspect]
     Active Substance: TEDUGLUTIDE
     Indication: SHORT-BOWEL SYNDROME
     Dosage: 0.229 MILLILITER, QD
     Route: 050
     Dates: start: 20170818
  3. TEDUGLUTIDE [Suspect]
     Active Substance: TEDUGLUTIDE
     Dosage: 0.2500 PER DAY
     Route: 058
     Dates: start: 20170808
  4. TEDUGLUTIDE [Suspect]
     Active Substance: TEDUGLUTIDE
     Indication: SHORT-BOWEL SYNDROME
     Dosage: 0.229 MILLILITER, QD
     Route: 050
     Dates: start: 20170818
  5. TEDUGLUTIDE [Suspect]
     Active Substance: TEDUGLUTIDE
     Dosage: 0.2500 PER DAY
     Route: 058
     Dates: start: 20170808
  6. TEDUGLUTIDE [Suspect]
     Active Substance: TEDUGLUTIDE
     Indication: SHORT-BOWEL SYNDROME
     Dosage: 0.229 MILLILITER, QD
     Route: 050
     Dates: start: 20170818
  7. TEDUGLUTIDE [Suspect]
     Active Substance: TEDUGLUTIDE
     Dosage: 0.2500 PER DAY
     Route: 058
     Dates: start: 20170808
  8. TEDUGLUTIDE [Suspect]
     Active Substance: TEDUGLUTIDE
     Indication: SHORT-BOWEL SYNDROME
     Dosage: 0.229 MILLILITER, QD
     Route: 050
     Dates: start: 20170818
  9. XANAX [Suspect]
     Active Substance: ALPRAZOLAM
     Indication: PRODUCT USED FOR UNKNOWN INDICATION
     Dosage: 1/2 DOSE; DAILY
     Route: 065

REACTIONS (12)
  - Fall [Recovering/Resolving]
  - Incorrect dose administered [Recovering/Resolving]
  - Dehydration [Unknown]
  - Pyrexia [Unknown]
  - Abdominal distension [Recovering/Resolving]
  - Nausea [Recovering/Resolving]
  - Weight increased [Recovering/Resolving]
  - Vomiting [Recovering/Resolving]
  - Therapy interrupted [Unknown]
  - Illness [Unknown]
  - Peripheral swelling [Recovering/Resolving]
  - Weight decreased [Unknown]

NARRATIVE: CASE EVENT DATE: 202103
